FAERS Safety Report 6486216-1 (Version None)
Quarter: 2009Q4

REPORT INFORMATION
  Report Type: 
  Country: None (occurrence: None)
  Receive Date: 20091209
  Receipt Date: 20090921
  Transmission Date: 20100525
  Serious: No
  Sender: FDA-Public Use
  Company Number: US-AMGEN-KDL357211

PATIENT

DRUGS (17)
  1. ENBREL [Suspect]
     Indication: RHEUMATOID ARTHRITIS
     Route: 058
     Dates: start: 20090529
  2. PLAQUENIL [Concomitant]
  3. PREMARIN [Concomitant]
  4. ATENOL [Concomitant]
  5. UNSPECIFIED MEDICATION [Concomitant]
  6. FLUCONAZOLE [Concomitant]
  7. SPIRONOLACTONE [Concomitant]
  8. METHOTREXATE [Concomitant]
  9. FOLIC ACID [Concomitant]
  10. CYCLOBENZAPRINE [Concomitant]
  11. SULFASALAZIN [Concomitant]
  12. ZOLPIDEM [Concomitant]
  13. HYDROCODONE [Concomitant]
  14. AVINZA [Concomitant]
  15. PRISTIQ [Concomitant]
  16. FLUOXETINE [Concomitant]
  17. FLUTICASONE PROPIONATE [Concomitant]

REACTIONS (3)
  - GLOMERULAR FILTRATION RATE DECREASED [None]
  - OEDEMA PERIPHERAL [None]
  - SINUS CONGESTION [None]
